FAERS Safety Report 17194590 (Version 3)
Quarter: 2022Q2

REPORT INFORMATION
  Report Type: Spontaneous
  Country: JP (occurrence: JP)
  Receive Date: 20191224
  Receipt Date: 20220603
  Transmission Date: 20220721
  Serious: Yes (Hospitalization, Other)
  Sender: FDA-Public Use
  Company Number: JP-SUN PHARMACEUTICAL INDUSTRIES LTD-2019R1-231431

PATIENT
  Age: 79 Year
  Sex: Female

DRUGS (1)
  1. DOCETAXEL [Suspect]
     Active Substance: DOCETAXEL
     Indication: Oesophageal carcinoma
     Dosage: UNK, 12 CYCLES,70 MG/M2) EVERY 3 WEEKS
     Route: 065

REACTIONS (3)
  - Malignant neoplasm progression [Recovering/Resolving]
  - Metastases to lung [Recovering/Resolving]
  - Therapy partial responder [Unknown]
